FAERS Safety Report 11080605 (Version 1)
Quarter: 2015Q2

REPORT INFORMATION
  Report Type: Report from Study
  Country: US (occurrence: None)
  Receive Date: 20150429
  Receipt Date: 20150429
  Transmission Date: 20150821
  Serious: Yes (Hospitalization)
  Sender: FDA-Public Use
  Company Number: 2837003

PATIENT
  Age: 57 Year
  Sex: Female
  Weight: 74 kg

DRUGS (3)
  1. (GEMCITABINE HYDROCHLORIDE) [Suspect]
     Active Substance: GEMCITABINE HYDROCHLORIDE
     Indication: PANCREATIC CARCINOMA
     Dosage: 1000 MG/M2 MILLIGRAM(S)/SQ. METER (UNKNOWN)?INTRAVENOUS (NOT OTHERWISE SPECIFIED)
     Route: 042
     Dates: start: 20141030
  2. ENZALUTAMIDE [Suspect]
     Active Substance: ENZALUTAMIDE
     Indication: PANCREATIC CARCINOMA
     Dosage: 160 MG MILLIGRAM (S), UNKNOWN, ORAL
     Route: 048
     Dates: start: 20141030
  3. (PACLITAXEL) [Suspect]
     Active Substance: PACLITAXEL
     Indication: PANCREATIC CARCINOMA
     Dosage: 125 MG/M2 MILLIGRAM(S)/SQ.METER (UNKNOWN)?INTRAVENOUS (NOT OTHERWISE SPECIFIED)
     Route: 042
     Dates: start: 20141030

REACTIONS (5)
  - Skin infection [None]
  - Candida infection [None]
  - Cellulitis [None]
  - Soft tissue disorder [None]
  - Staphylococcal bacteraemia [None]

NARRATIVE: CASE EVENT DATE: 20150223
